FAERS Safety Report 16952167 (Version 1)
Quarter: 2019Q4

REPORT INFORMATION
  Report Type: Spontaneous
  Country: US (occurrence: US)
  Receive Date: 20191022
  Receipt Date: 20191022
  Transmission Date: 20200122
  Serious: Yes (Other)
  Sender: FDA-Public Use
  Company Number: None

PATIENT
  Age: 58 Year
  Sex: Female
  Weight: 69.75 kg

DRUGS (7)
  1. BLISTEX MEDICATED LIP BALM NOS [Suspect]
     Active Substance: DIMETHICONE\OCTINOXATE\OCTISALATE OR DIMETHICONE\OXYBENZONE\PADIMATE O
     Indication: LIP DRY
     Dosage: ?          OTHER STRENGTH:MEDICATED, SPF 15;?
     Route: 061
     Dates: start: 20191021, end: 20191021
  2. TUMERIC WITH GINGER POWDER [Concomitant]
  3. VITAMIN B12 [Concomitant]
     Active Substance: CYANOCOBALAMIN
  4. MULTIVITAMINS [Concomitant]
     Active Substance: VITAMINS
  5. BENADRYL ALLERGY MEDICINE [Concomitant]
  6. VITAMIN C [Concomitant]
     Active Substance: ASCORBIC ACID
  7. BIOTIN [Concomitant]
     Active Substance: BIOTIN

REACTIONS (4)
  - Hypoaesthesia oral [None]
  - Intranasal hypoaesthesia [None]
  - Paraesthesia oral [None]
  - Lip swelling [None]

NARRATIVE: CASE EVENT DATE: 20191021
